FAERS Safety Report 9415325 (Version 1)
Quarter: 2013Q3

REPORT INFORMATION
  Report Type: Spontaneous
  Country: FR (occurrence: FR)
  Receive Date: 20130723
  Receipt Date: 20130723
  Transmission Date: 20140515
  Serious: Yes (Life-Threatening)
  Sender: FDA-Public Use
  Company Number: FR-BRISTOL-MYERS SQUIBB COMPANY-19128263

PATIENT
  Age: 59 Year
  Sex: Male

DRUGS (9)
  1. ERBITUX SOLN FOR INF [Suspect]
     Indication: EPIGLOTTIC CARCINOMA
     Route: 042
     Dates: start: 20130424, end: 20130425
  2. CISPLATIN FOR INJ [Suspect]
     Indication: EPIGLOTTIC CARCINOMA
     Route: 042
     Dates: start: 20130424, end: 20130425
  3. FLUOROURACIL [Suspect]
     Indication: EPIGLOTTIC CARCINOMA
     Route: 042
     Dates: start: 20130424, end: 20130428
  4. NOCTAMIDE [Concomitant]
     Dosage: 1 DF : 2 GRAM?TABLET
     Route: 048
  5. SOLUPRED [Concomitant]
     Dosage: EFFERVESCENT TABLET
     Route: 048
  6. DOLIPRANE [Concomitant]
     Indication: PAIN
     Dosage: EFFERVESCENT TABLET
     Route: 048
     Dates: start: 20130424
  7. ZOPHREN [Concomitant]
     Route: 048
     Dates: start: 20130424
  8. EMEND [Concomitant]
     Route: 048
     Dates: start: 20130424
  9. VOGALENE [Concomitant]
     Route: 048
     Dates: start: 20130424

REACTIONS (1)
  - Encephalopathy [Recovered/Resolved]
